FAERS Safety Report 6134734-8 (Version None)
Quarter: 2009Q1

REPORT INFORMATION
  Report Type: 
  Country: None (occurrence: None)
  Receive Date: 20090325
  Receipt Date: 20090306
  Transmission Date: 20090719
  Serious: Yes (Death)
  Sender: FDA-Public Use
  Company Number: 2009AP000956

PATIENT
  Age: 15 Year
  Sex: Male

DRUGS (4)
  1. VALPROIC ACID [Suspect]
     Indication: ATTENTION DEFICIT/HYPERACTIVITY DISORDER
  2. RISPERIDONE [Concomitant]
  3. DEXTROAMPHETAMINE (DEXMFETAMINE) [Concomitant]
  4. CYPROHEPTADINE HCL [Suspect]

REACTIONS (17)
  - ANOREXIA [None]
  - AUTONOMIC NERVOUS SYSTEM IMBALANCE [None]
  - BRAIN HERNIATION [None]
  - BRAIN OEDEMA [None]
  - CEREBRAL HYPOPERFUSION [None]
  - CONFUSIONAL STATE [None]
  - DIABETES INSIPIDUS [None]
  - DYSARTHRIA [None]
  - ENCEPHALOPATHY [None]
  - GAIT DISTURBANCE [None]
  - HAEMODIALYSIS [None]
  - HEPATIC STEATOSIS [None]
  - HYPERAMMONAEMIA [None]
  - HYPERTENSION [None]
  - LETHARGY [None]
  - ORNITHINE TRANSCARBAMOYLASE DEFICIENCY [None]
  - STATUS EPILEPTICUS [None]
